FAERS Safety Report 8452441-3 (Version None)
Quarter: 2012Q2

REPORT INFORMATION
  Report Type: 
  Country: None (occurrence: None)
  Receive Date: 20120620
  Receipt Date: 20120614
  Transmission Date: 20120825
  Serious: Yes (Hospitalization, Other)
  Sender: FDA-Public Use
  Company Number: US-PFIZER INC-2012144766

PATIENT
  Age: 51 Year
  Sex: Male

DRUGS (10)
  1. LUNESTA [Concomitant]
     Dosage: UNK
  2. RISPERIDONE [Concomitant]
     Dosage: UNK
  3. BIOTIN [Concomitant]
     Dosage: UNK
  4. LYRICA [Suspect]
     Indication: FIBROMYALGIA
     Dosage: 50 MG, 1X/DAY
     Dates: start: 20120101
  5. SKELAXIN [Concomitant]
     Dosage: UNK
  6. NEURONTIN [Concomitant]
     Dosage: 300 MG, 1X/DAY
  7. PAXIL [Concomitant]
     Dosage: UNK
  8. RELAFEN [Concomitant]
     Dosage: UNK
  9. CLONAZEPAM [Concomitant]
     Dosage: UNK
  10. DUTASTERIDE/TAMSULOSIN HCL [Concomitant]
     Dosage: UNK

REACTIONS (1)
  - SUICIDAL IDEATION [None]
